FAERS Safety Report 12190702 (Version 2)
Quarter: 2016Q2

REPORT INFORMATION
  Report Type: Spontaneous
  Country: FR (occurrence: FR)
  Receive Date: 20160318
  Receipt Date: 20160414
  Transmission Date: 20160815
  Serious: Yes (Hospitalization)
  Sender: FDA-Public Use
  Company Number: FR-NOVOPROD-483910

PATIENT
  Age: 61 Year
  Sex: Male

DRUGS (7)
  1. ELISOR [Concomitant]
     Active Substance: PRAVASTATIN SODIUM
     Dosage: 40 MG, QD (TWICE IN EVENING)
     Route: 048
  2. GLUCOPHAGE [Concomitant]
     Active Substance: METFORMIN HYDROCHLORIDE
     Dosage: 3 G, QD (1 G IN MORNING, 1 G AT NOON AND 1 G IN EVENING)
     Route: 048
  3. AMAREL [Concomitant]
     Active Substance: GLIMEPIRIDE
     Dosage: 1.5 DF, QD
     Route: 048
  4. AVLOCARDYL                         /00030001/ [Concomitant]
     Active Substance: PROPRANOLOL HYDROCHLORIDE
     Dosage: 1 DF, QD
     Route: 048
  5. AMLOR [Concomitant]
     Active Substance: AMLODIPINE BESYLATE
     Dosage: 5 MG, QD
     Route: 048
  6. VICTOZA [Suspect]
     Active Substance: LIRAGLUTIDE
     Indication: TYPE 2 DIABETES MELLITUS
     Dosage: 1.8 MG, QD(MORNING)
     Route: 058
     Dates: start: 20121030
  7. FORTZAAR [Concomitant]
     Active Substance: HYDROCHLOROTHIAZIDE\LOSARTAN POTASSIUM
     Dosage: 1 DF, QD
     Route: 048

REACTIONS (2)
  - Hyperthyroidism [Recovered/Resolved]
  - Toxic nodular goitre [Recovered/Resolved with Sequelae]

NARRATIVE: CASE EVENT DATE: 201502
